FAERS Safety Report 6209462-0 (Version None)
Quarter: 2009Q2

REPORT INFORMATION
  Report Type: 
  Country: None (occurrence: None)
  Receive Date: 20090601
  Receipt Date: 20081119
  Transmission Date: 20091009
  Serious: No
  Sender: FDA-Public Use
  Company Number: A0758250A

PATIENT
  Sex: Male

DRUGS (3)
  1. AUGMENTIN '125' [Suspect]
     Indication: DRUG USE FOR UNKNOWN INDICATION
     Route: 065
  2. RELAFEN [Suspect]
     Indication: DRUG USE FOR UNKNOWN INDICATION
     Route: 065
  3. AVANDIA [Suspect]
     Indication: DRUG USE FOR UNKNOWN INDICATION
     Route: 065

REACTIONS (6)
  - ADVERSE EVENT [None]
  - GASTRIC DISORDER [None]
  - GLOSSODYNIA [None]
  - HYPERSENSITIVITY [None]
  - SOMNOLENCE [None]
  - TONGUE BLISTERING [None]
